FAERS Safety Report 10636749 (Version 8)
Quarter: 2015Q2

REPORT INFORMATION
  Report Type: Report from Study
  Country: US (occurrence: US)
  Receive Date: 20141208
  Receipt Date: 20150625
  Transmission Date: 20150821
  Serious: Yes (Life-Threatening, Hospitalization)
  Sender: FDA-Public Use
  Company Number: US-ROCHE-1498316

PATIENT
  Age: 54 Year
  Sex: Female
  Weight: 82.4 kg

DRUGS (20)
  1. DOCETAXEL. [Suspect]
     Active Substance: DOCETAXEL
     Indication: HER-2 POSITIVE BREAST CANCER
     Dosage: INTENDED DOSE LEVEL: 75 MG/M2, TOTAL DOSE 144 MG
     Route: 042
     Dates: start: 20141022, end: 20141223
  2. LISINOPRIL. [Concomitant]
     Active Substance: LISINOPRIL
     Route: 065
     Dates: start: 200906
  3. IMODIUM [Concomitant]
     Active Substance: LOPERAMIDE HYDROCHLORIDE
     Route: 065
     Dates: start: 20141028
  4. CARBOPLATIN. [Suspect]
     Active Substance: CARBOPLATIN
     Indication: HER-2 POSITIVE BREAST CANCER
     Dosage: INTENDED AUC: 6
     Route: 042
     Dates: start: 20141022, end: 20141223
  5. BISACODYL. [Concomitant]
     Active Substance: BISACODYL
     Indication: PROPHYLAXIS
     Route: 065
     Dates: start: 20141125, end: 20141126
  6. METFORMIN [Concomitant]
     Active Substance: METFORMIN HYDROCHLORIDE
     Route: 065
     Dates: start: 200906
  7. OMEPRAZOLE. [Concomitant]
     Active Substance: OMEPRAZOLE
     Route: 065
     Dates: start: 200906
  8. LOMOTIL (ATROPINE SULFATE/DIPHENOXYLATE HYDROCHLORIDE) [Concomitant]
     Route: 065
     Dates: start: 20141028
  9. TRASTUZUMAB [Suspect]
     Active Substance: TRASTUZUMAB
     Dosage: MAINTENANCE DOSE; START TIME OF INFUSION: 14:30?DATE OF LAST DOSE PRIOR TO ADVERSE EVENT (SEPSIS) 10
     Route: 042
     Dates: start: 20141110
  10. DOCETAXEL. [Suspect]
     Active Substance: DOCETAXEL
     Dosage: DATE OF LAST DOSE PRIOR TO ADVERSE EVENT (SEPSIS) 10/NOV/2014
     Route: 042
     Dates: start: 20141110
  11. GABAPENTIN. [Concomitant]
     Active Substance: GABAPENTIN
     Route: 065
     Dates: start: 201404
  12. ALPRAZOLAM. [Concomitant]
     Active Substance: ALPRAZOLAM
     Route: 065
     Dates: start: 20140929
  13. ACETAMINOPHEN. [Concomitant]
     Active Substance: ACETAMINOPHEN
     Indication: PROPHYLAXIS
     Route: 065
     Dates: start: 20141125, end: 20141126
  14. CARBOPLATIN. [Suspect]
     Active Substance: CARBOPLATIN
     Dosage: DATE OF LAST DOSE PRIOR TO ADVERSE EVENT (SEPSIS) 10/NOV/2014
     Route: 042
     Dates: start: 20141110
  15. PERTUZUMAB [Suspect]
     Active Substance: PERTUZUMAB
     Indication: HER-2 POSITIVE BREAST CANCER
     Dosage: LOADING DOSE
     Route: 042
     Dates: start: 20141022, end: 20141223
  16. GLIPIZIDE. [Concomitant]
     Active Substance: GLIPIZIDE
     Route: 065
     Dates: start: 200906
  17. PERTUZUMAB [Suspect]
     Active Substance: PERTUZUMAB
     Dosage: MAINTENANCE DOSE?DATE OF LAST DOSE PRIOR TO ADVERSE EVENT (SEPSIS) 10/NOV/2014 START TIME OF INFUSIO
     Route: 042
     Dates: start: 20141110
  18. TRASTUZUMAB [Suspect]
     Active Substance: TRASTUZUMAB
     Indication: HER-2 POSITIVE BREAST CANCER
     Dosage: LOADING DOSE; START TIME OF INFUSION: 14:50 AND STOP TIME OF INFUSION: 16:20
     Route: 042
     Dates: start: 20141022, end: 20141223
  19. SIMVASTATIN. [Concomitant]
     Active Substance: SIMVASTATIN
     Route: 065
     Dates: start: 200906
  20. PANTOPRAZOLE [Concomitant]
     Active Substance: PANTOPRAZOLE SODIUM
     Indication: PROPHYLAXIS
     Route: 065
     Dates: start: 20141125

REACTIONS (2)
  - Sepsis [Recovered/Resolved]
  - Subcutaneous abscess [Unknown]

NARRATIVE: CASE EVENT DATE: 20141118
